FAERS Safety Report 20164522 (Version 1)
Quarter: 2021Q4

REPORT INFORMATION
  Report Type: Spontaneous
  Country: CN (occurrence: CN)
  Receive Date: 20211209
  Receipt Date: 20211209
  Transmission Date: 20220303
  Serious: Yes (Other)
  Sender: FDA-Public Use
  Company Number: CN-BAXTER-2021BAX038669

PATIENT
  Age: 42 Year
  Sex: Female
  Weight: 48 kg

DRUGS (8)
  1. CYCLOPHOSPHAMIDE [Suspect]
     Active Substance: CYCLOPHOSPHAMIDE
     Indication: Breast cancer female
     Dosage: PRIOR TREATMENT, 1-3 CYCLE OF CHEMOTHERAPY
     Route: 041
  2. CYCLOPHOSPHAMIDE [Suspect]
     Active Substance: CYCLOPHOSPHAMIDE
     Dosage: CYCLOPHOSPHAMIDE 0.8G + 0.9% SODIUM CHLORIDE 50 ML, FOURTH CYCLE OF CHEMOTHERAPY
     Route: 041
     Dates: start: 20211112, end: 20211112
  3. SODIUM CHLORIDE [Suspect]
     Active Substance: SODIUM CHLORIDE
     Indication: Medication dilution
     Dosage: PRIOR TREATMENT, 1-4 CYCLE OF CHEMOTHERAPY, 0.9% SODIUM CHLORIDE + DOCETAXEL
     Route: 041
  4. SODIUM CHLORIDE [Suspect]
     Active Substance: SODIUM CHLORIDE
     Dosage: DOCETAXEL INJECTION (TAIZHENGXIN) 110MG + 0.9% SODIUM CHLORIDE 250 ML, FOURTH CYCLE OF CHEMOTHERAPY
     Route: 041
     Dates: start: 20211112, end: 20211112
  5. SODIUM CHLORIDE [Suspect]
     Active Substance: SODIUM CHLORIDE
     Indication: Medication dilution
     Dosage: 1-3 CYCLE OF CHEMOTHERAPY
     Route: 041
  6. SODIUM CHLORIDE [Suspect]
     Active Substance: SODIUM CHLORIDE
     Dosage: CYCLOPHOSPHAMIDE 0.8G + 0.9% SODIUM CHLORIDE 50 ML, FOURTH CYCLE OF CHEMOTHERAPY
     Route: 041
     Dates: start: 20211112, end: 20211112
  7. DOCETAXEL [Suspect]
     Active Substance: DOCETAXEL
     Indication: Breast cancer female
     Dosage: PRIOR TREATMENT, 1-3 CYCLE OF CHEMOTHERAPY
     Route: 041
  8. DOCETAXEL [Suspect]
     Active Substance: DOCETAXEL
     Dosage: DOCETAXEL INJECTION (TAIZHENGXIN) 110MG + 0.9% SODIUM CHLORIDE 250 ML, FOURTH CYCLE OF CHEMOTHERAPY
     Route: 041
     Dates: start: 20211112, end: 20211112

REACTIONS (5)
  - White blood cell count decreased [Recovering/Resolving]
  - Agranulocytosis [Recovering/Resolving]
  - Myelosuppression [Recovering/Resolving]
  - Nausea [Unknown]
  - Vomiting [Unknown]

NARRATIVE: CASE EVENT DATE: 20211118
